FAERS Safety Report 5089786-3 (Version None)
Quarter: 2006Q3

REPORT INFORMATION
  Report Type: 
  Country: None (occurrence: None)
  Receive Date: 20060823
  Receipt Date: 20060811
  Transmission Date: 20061208
  Serious: Yes (Hospitalization, Other)
  Sender: FDA-Public Use
  Company Number: 2006-BP-09363RO

PATIENT
  Age: 68 Year
  Sex: Female

DRUGS (1)
  1. COCAINE HCL TOPICAL SOLUTION, 4% (COCAINE) [Suspect]
     Indication: ANAESTHESIA
     Dosage: 4% X 1 DOSE (SEE TEXT), IN

REACTIONS (4)
  - ACUTE MYOCARDIAL INFARCTION [None]
  - ANAESTHETIC COMPLICATION [None]
  - CARDIOGENIC SHOCK [None]
  - SINUS BRADYCARDIA [None]
